FAERS Safety Report 9737252 (Version 1)
Quarter: 2013Q4

REPORT INFORMATION
  Report Type: Spontaneous
  Country: US (occurrence: US)
  Receive Date: 20131206
  Receipt Date: 20131206
  Transmission Date: 20140711
  Serious: Yes (Other)
  Sender: FDA-Public Use
  Company Number: US-GILEAD-2013-0089235

PATIENT
  Age: 73 Year
  Sex: Female

DRUGS (3)
  1. LETAIRIS [Suspect]
     Indication: PRODUCT USED FOR UNKNOWN INDICATION
     Dosage: 10 MG, QD
     Route: 048
     Dates: start: 20110721
  2. REVATIO [Concomitant]
  3. REMODULIN [Concomitant]

REACTIONS (4)
  - Hypoventilation [Unknown]
  - Loss of consciousness [Unknown]
  - Back pain [Unknown]
  - Dyspnoea [Unknown]
